FAERS Safety Report 8849239 (Version 2)
Quarter: 2013Q3

REPORT INFORMATION
  Report Type: Report from Study
  Country: NL (occurrence: NL)
  Receive Date: 20121019
  Receipt Date: 20130926
  Transmission Date: 20140515
  Serious: Yes (Other)
  Sender: FDA-Public Use
  Company Number: NL-US-EMD SERONO, INC.-7167816

PATIENT
  Age: 58 Year
  Sex: Female
  Weight: 85 kg

DRUGS (2)
  1. REBIF [Suspect]
     Indication: MULTIPLE SCLEROSIS
     Route: 058
     Dates: start: 2000, end: 20120924
  2. LACTULOSE [Suspect]
     Indication: PRODUCT USED FOR UNKNOWN INDICATION

REACTIONS (6)
  - Abdominal wall infection [Recovered/Resolved]
  - Skin disorder [Unknown]
  - Skin infection [Unknown]
  - Diarrhoea [Recovered/Resolved]
  - Injection site necrosis [Unknown]
  - Injection site reaction [Not Recovered/Not Resolved]
